FAERS Safety Report 7633728-0 (Version None)
Quarter: 2011Q3

REPORT INFORMATION
  Report Type: 
  Country: None (occurrence: None)
  Receive Date: 20110701
  Receipt Date: 20110218
  Transmission Date: 20111222
  Serious: Yes (Death, Hospitalization, Other)
  Sender: FDA-Public Use
  Company Number: 7043269

PATIENT
  Age: 55 Year
  Sex: Female
  Weight: 61 kg

DRUGS (35)
  1. DIFLUCAN [Concomitant]
  2. ADVAIR DISKUS 100/50 [Concomitant]
  3. NAPROSYN [Concomitant]
  4. PLAVIX [Concomitant]
  5. DOCUSTATE SODIUM (DOCUSATE SODIUM) [Concomitant]
  6. PREMARIN [Concomitant]
  7. LASIX [Concomitant]
  8. DITROPAN [Concomitant]
  9. ZOCOR [Concomitant]
  10. REBIF [Suspect]
     Indication: MULTIPLE SCLEROSIS
     Dosage: 44 MCG, 3 IN 1 WK, SUBCUTANEOUS ; 44 MCG, 3 IN 1 WK, SUBCUTANEOUS
     Route: 058
     Dates: start: 20061002
  11. REBIF [Suspect]
     Indication: MULTIPLE SCLEROSIS
     Dosage: 44 MCG, 3 IN 1 WK, SUBCUTANEOUS ; 44 MCG, 3 IN 1 WK, SUBCUTANEOUS
     Route: 058
     Dates: start: 20100830, end: 20100101
  12. ACETAMINOPHEN [Concomitant]
  13. ASCORBIC ACID [Concomitant]
  14. CRANBERRY (VACCINIUM MACROCARPON) [Concomitant]
  15. NIACIN [Concomitant]
  16. MIRAPEX [Concomitant]
  17. FERGON (FERROUS GLUCONATE) [Concomitant]
  18. IBUPROFEN (ADVIL) [Concomitant]
  19. COMMPAZINE (PROCHLORPERAZINE EDISYLATE) [Concomitant]
  20. DETROL LA (TOLTERODIINE L-TARTRATE) [Concomitant]
  21. LOVAZA [Concomitant]
  22. IMDUR [Concomitant]
  23. SPIRIVA [Concomitant]
  24. EFFEXOR XR [Concomitant]
  25. SYNTHROID [Concomitant]
  26. COMBIVENT [Concomitant]
  27. TENORMIN [Concomitant]
  28. ZITHROMAX [Concomitant]
  29. PRILOSEC [Concomitant]
  30. DELTASONE [Concomitant]
  31. OXYGEN (OXYGEN) [Concomitant]
  32. ASPIRIN [Concomitant]
  33. BISACODYL (BISACODYL) [Concomitant]
  34. ZETIA [Concomitant]
  35. ROBITUSSIN AC (CODEINE PHOS.W/GUAIFENESIN/PHENIRAMINE MAL.) [Concomitant]

REACTIONS (8)
  - BACK PAIN [None]
  - SEPSIS [None]
  - ANGINA PECTORIS [None]
  - URINARY RETENTION [None]
  - ACUTE RESPIRATORY FAILURE [None]
  - APPENDICITIS PERFORATED [None]
  - DYSPNOEA [None]
  - MUSCLE SPASTICITY [None]
